FAERS Safety Report 5860722-2 (Version None)
Quarter: 2008Q3

REPORT INFORMATION
  Report Type: 
  Country: None (occurrence: None)
  Receive Date: 20080826
  Receipt Date: 20080811
  Transmission Date: 20090109
  Serious: Yes (Hospitalization)
  Sender: FDA-Public Use
  Company Number: SPV1-2008-01468

PATIENT
  Age: 10 Year
  Sex: Male
  Weight: 29.5 kg

DRUGS (3)
  1. DAYTRANA [Suspect]
     Indication: ATTENTION DEFICIT/HYPERACTIVITY DISORDER
     Dosage: 30 MG, 1X/DAY:QD, TRANSDERMAL
     Route: 062
     Dates: start: 20080501, end: 20080706
  2. RISPERDAL [Suspect]
     Indication: ANGER
     Dosage: 0.5 MG (1/2 TAB), 1X/DAY:QD IN AM, ORAL
     Route: 048
     Dates: start: 20080111
  3. RISPERDAL [Suspect]
     Indication: RESTLESSNESS
     Dosage: 0.5 MG (1/2 TAB), 1X/DAY:QD IN AM, ORAL
     Route: 048
     Dates: start: 20080111

REACTIONS (9)
  - APPLICATION SITE ERYTHEMA [None]
  - DRUG EFFECT INCREASED [None]
  - DYSKINESIA [None]
  - DYSPHAGIA [None]
  - DYSPHEMIA [None]
  - MUSCLE SPASMS [None]
  - PALPITATIONS [None]
  - PERIPHERAL COLDNESS [None]
  - PSYCHOTIC DISORDER [None]
